FAERS Safety Report 20475133 (Version 1)
Quarter: 2022Q1

REPORT INFORMATION
  Report Type: Spontaneous
  Country: US (occurrence: None)
  Receive Date: 20220215
  Receipt Date: 20220215
  Transmission Date: 20220423
  Serious: Yes (Hospitalization)
  Sender: FDA-Public Use
  Company Number: US-ROCHE-3019048

PATIENT
  Age: 3 Year
  Sex: Female
  Weight: 16.3 kg

DRUGS (1)
  1. EVRYSDI [Suspect]
     Active Substance: RISDIPLAM
     Indication: Spinal muscular atrophy
     Dosage: DAILY VIA GTUBE, TAKE 5 ML DAILY (3.75 MG)
     Route: 050
     Dates: start: 20211001

REACTIONS (5)
  - Gastrointestinal disorder [Unknown]
  - Feeding intolerance [Unknown]
  - Abdominal pain upper [Unknown]
  - Nausea [Unknown]
  - Oral discharge [Unknown]

NARRATIVE: CASE EVENT DATE: 20211203
